FAERS Safety Report 6210646-6 (Version None)
Quarter: 2009Q2

REPORT INFORMATION
  Report Type: 
  Country: None (occurrence: None)
  Receive Date: 20090529
  Receipt Date: 20090529
  Transmission Date: 20091009
  Serious: No
  Sender: FDA-Public Use
  Company Number: None

PATIENT
  Age: 39 Year
  Sex: Male
  Weight: 102.0593 kg

DRUGS (3)
  1. ZOLOFT [Suspect]
     Indication: ANXIETY
     Dosage: 100M  1 A DAY PO
     Route: 048
     Dates: start: 20090501, end: 20090528
  2. ZOLOFT [Suspect]
     Indication: DEPRESSION
     Dosage: 100M  1 A DAY PO
     Route: 048
     Dates: start: 20090501, end: 20090528
  3. ZOLOFT [Suspect]
     Indication: OBSESSIVE-COMPULSIVE DISORDER
     Dosage: 100M  1 A DAY PO
     Route: 048
     Dates: start: 20090501, end: 20090528

REACTIONS (7)
  - AFFECTIVE DISORDER [None]
  - DRUG EFFECT DECREASED [None]
  - HEADACHE [None]
  - HYPERHIDROSIS [None]
  - LIBIDO DECREASED [None]
  - OBSESSIVE-COMPULSIVE DISORDER [None]
  - PRODUCT SUBSTITUTION ISSUE [None]
